FAERS Safety Report 10060900 (Version 5)
Quarter: 2014Q4

REPORT INFORMATION
  Report Type: Spontaneous
  Country: JP (occurrence: JP)
  Receive Date: 20140404
  Receipt Date: 20141015
  Transmission Date: 20150528
  Serious: Yes (Hospitalization, Other)
  Sender: FDA-Public Use
  Company Number: JP-ABBVIE-14P-087-1218033-00

PATIENT
  Age: 66 Year
  Sex: Male
  Weight: 68 kg

DRUGS (12)
  1. ISONIAZID. [Concomitant]
     Active Substance: ISONIAZID
     Indication: MYCOBACTERIUM TUBERCULOSIS COMPLEX TEST POSITIVE
     Route: 048
     Dates: start: 20130306, end: 20131211
  2. HUMIRA [Suspect]
     Active Substance: ADALIMUMAB
     Route: 058
     Dates: start: 20130807, end: 20140209
  3. NEORAL [Concomitant]
     Active Substance: CYCLOSPORINE
     Dosage: 100 MG/50 MG, BID
     Dates: start: 20131010, end: 20131024
  4. NEORAL [Concomitant]
     Active Substance: CYCLOSPORINE
     Dosage: 100 MG/50 MG, BID
     Dates: start: 20130802, end: 20130812
  5. NEORAL [Concomitant]
     Active Substance: CYCLOSPORINE
     Dates: start: 20131025, end: 20140314
  6. PYRIDOXAL PHOSPHATE [Concomitant]
     Active Substance: PYRIDOXAL PHOSPHATE
     Indication: MYCOBACTERIUM TUBERCULOSIS COMPLEX TEST POSITIVE
     Route: 048
     Dates: start: 20130306
  7. HUMIRA [Suspect]
     Active Substance: ADALIMUMAB
     Indication: RHEUMATOID ARTHRITIS
     Route: 058
     Dates: start: 20130724, end: 20130724
  8. NEORAL [Concomitant]
     Active Substance: CYCLOSPORINE
     Dosage: 100 MG/50 MG, BID
     Dates: start: 20140315, end: 20140414
  9. HUMIRA [Suspect]
     Active Substance: ADALIMUMAB
     Route: 058
     Dates: start: 20140223, end: 20140319
  10. NEORAL [Concomitant]
     Active Substance: CYCLOSPORINE
     Dates: start: 20130813, end: 20130822
  11. NEORAL [Concomitant]
     Active Substance: CYCLOSPORINE
     Dates: start: 20131004, end: 20131009
  12. NEORAL [Concomitant]
     Active Substance: CYCLOSPORINE
     Indication: PSORIASIS
     Route: 048
     Dates: start: 200912, end: 20130801

REACTIONS (2)
  - Arthritis [Unknown]
  - Pancreatic carcinoma recurrent [Unknown]

NARRATIVE: CASE EVENT DATE: 20140319
